FAERS Safety Report 16247642 (Version 2)
Quarter: 2019Q2

REPORT INFORMATION
  Report Type: Spontaneous
  Country: US (occurrence: US)
  Receive Date: 20190428
  Receipt Date: 20190615
  Transmission Date: 20190711
  Serious: No
  Sender: FDA-Public Use
  Company Number: US-APOTEX-2019AP012378

PATIENT
  Sex: Female

DRUGS (1)
  1. MODAFINIL TABLETS USP [Suspect]
     Active Substance: MODAFINIL
     Indication: PRODUCT USED FOR UNKNOWN INDICATION
     Dosage: UNK (ONE OR TWO TABLET ONCE A WEEK)
     Route: 065

REACTIONS (3)
  - Medication error [Unknown]
  - Drug ineffective [Unknown]
  - Product dispensing issue [Unknown]
